FAERS Safety Report 7419134-2 (Version None)
Quarter: 2011Q2

REPORT INFORMATION
  Report Type: 
  Country: None (occurrence: None)
  Receive Date: 20110415
  Receipt Date: 20110412
  Transmission Date: 20111010
  Serious: Yes (Hospitalization, Other)
  Sender: FDA-Public Use
  Company Number: JP-PFIZER INC-2011080856

PATIENT

DRUGS (2)
  1. WARFARIN [Concomitant]
  2. LYRICA [Suspect]
     Indication: NEURALGIA
     Dosage: 150MG, DAILY
     Route: 048

REACTIONS (2)
  - CARDIAC FAILURE [None]
  - PERICARDIAL EFFUSION [None]
